FAERS Safety Report 19738079 (Version 1)
Quarter: 2021Q3

REPORT INFORMATION
  Report Type: Spontaneous
  Country: DE (occurrence: DE)
  Receive Date: 20210823
  Receipt Date: 20210823
  Transmission Date: 20211014
  Serious: Yes (Hospitalization)
  Sender: FDA-Public Use
  Company Number: DE-MYLANLABS-2021M1053603

PATIENT
  Age: 6 Year
  Sex: Male
  Weight: 27 kg

DRUGS (2)
  1. RISPERIDON [Concomitant]
     Active Substance: RISPERIDONE
     Indication: DISTURBANCE IN SOCIAL BEHAVIOUR
     Dosage: 1 MILLIGRAM, QD
     Route: 048
  2. RISPERIDONE. [Suspect]
     Active Substance: RISPERIDONE
     Indication: PRODUCT USED FOR UNKNOWN INDICATION
     Dosage: KA
     Route: 048
     Dates: start: 20200113, end: 20200113

REACTIONS (3)
  - Product confusion [Recovered/Resolved]
  - Accidental overdose [Recovered/Resolved]
  - Product administration error [Recovered/Resolved]

NARRATIVE: CASE EVENT DATE: 20200113
